FAERS Safety Report 21103584 (Version 1)
Quarter: 2022Q3

REPORT INFORMATION
  Report Type: Spontaneous
  Country: GR (occurrence: GR)
  Receive Date: 20220720
  Receipt Date: 20220720
  Transmission Date: 20221026
  Serious: Yes (Other)
  Sender: FDA-Public Use
  Company Number: GR-JNJFOC-20220725350

PATIENT
  Age: 94 Year
  Sex: Male

DRUGS (1)
  1. HALOPERIDOL [Suspect]
     Active Substance: HALOPERIDOL
     Indication: Product used for unknown indication
     Dosage: (1/2 AT NOON - 1/2 AT NIGHT)
     Route: 048

REACTIONS (4)
  - Hallucination [Unknown]
  - Urinary retention [Unknown]
  - Extrapyramidal disorder [Unknown]
  - Insomnia [Unknown]
